FAERS Safety Report 5219391-7 (Version None)
Quarter: 2007Q1

REPORT INFORMATION
  Report Type: 
  Country: None (occurrence: None)
  Receive Date: 20070125
  Receipt Date: 20060331
  Transmission Date: 20070707
  Serious: Yes (Hospitalization)
  Sender: FDA-Public Use
  Company Number: US-BRISTOL-MYERS SQUIBB COMPANY-13333042

PATIENT
  Age: 77 Year
  Sex: Female

DRUGS (6)
  1. IFEX [Suspect]
     Indication: SARCOMA
     Route: 042
  2. DOXORUBICIN HCL [Concomitant]
  3. WARFARIN SODIUM [Concomitant]
  4. VITAMINS [Concomitant]
  5. ZETIA [Concomitant]
  6. DEXAMETHASONE [Concomitant]

REACTIONS (2)
  - CONFUSIONAL STATE [None]
  - DISORIENTATION [None]
